FAERS Safety Report 21136366 (Version 1)
Quarter: 2022Q3

REPORT INFORMATION
  Report Type: Spontaneous
  Country: JP (occurrence: JP)
  Receive Date: 20220727
  Receipt Date: 20220727
  Transmission Date: 20221026
  Serious: Yes (Hospitalization, Other)
  Sender: FDA-Public Use
  Company Number: JP-NOVARTISPH-NVSJ2022JP094765

PATIENT
  Age: 38 Year
  Sex: Female

DRUGS (2)
  1. DICLOFENAC [Suspect]
     Active Substance: DICLOFENAC
     Indication: Sinusitis
     Dosage: UNK
     Route: 048
  2. LEVOFLOXACIN HEMIHYDRATE [Concomitant]
     Active Substance: LEVOFLOXACIN
     Indication: Product used for unknown indication
     Dosage: UNK
     Route: 065

REACTIONS (9)
  - Hepatic function abnormal [Unknown]
  - Pyrexia [Unknown]
  - Myalgia [Unknown]
  - Toxic epidermal necrolysis [Unknown]
  - Rash [Recovering/Resolving]
  - Erythema [Unknown]
  - Mucosal erosion [Unknown]
  - Hypogammaglobulinaemia [Unknown]
  - Selective IgA immunodeficiency [Unknown]
